FAERS Safety Report 6038821-4 (Version None)
Quarter: 2009Q1

REPORT INFORMATION
  Report Type: 
  Country: None (occurrence: None)
  Receive Date: 20090115
  Receipt Date: 20080801
  Transmission Date: 20090719
  Serious: No
  Sender: FDA-Public Use
  Company Number: US-BAYER-200813290BCC

PATIENT
  Sex: Male
  Weight: 86 kg

DRUGS (7)
  1. ALEVE [Suspect]
     Indication: ARTHRITIS
     Route: 048
  2. LIPITOR [Concomitant]
  3. LISINOPRIL [Concomitant]
  4. FLOMAX [Concomitant]
  5. PRILOSEC [Concomitant]
  6. SALMON OIL [Concomitant]
  7. ASPIRIN [Concomitant]

REACTIONS (1)
  - HAEMORRHAGIC DIATHESIS [None]
